FAERS Safety Report 20339360 (Version 2)
Quarter: 2022Q1

REPORT INFORMATION
  Report Type: Spontaneous
  Country: US (occurrence: US)
  Receive Date: 20220117
  Receipt Date: 20220131
  Transmission Date: 20220424
  Serious: No
  Sender: FDA-Public Use
  Company Number: US-AIMMUNE THERAPEUTICS, INC.-2022AIMT00012

PATIENT

DRUGS (2)
  1. PALFORZIA [Suspect]
     Active Substance: PEANUT
     Indication: Food allergy
     Dosage: 300 MG, 1X/DAY
     Route: 048
     Dates: start: 202112
  2. PALFORZIA [Suspect]
     Active Substance: PEANUT
     Dosage: 300 MG, ONCE, PRIOR CHEEK SWELLING
     Route: 048
     Dates: start: 20220109, end: 20220109

REACTIONS (3)
  - Product packaging difficult to open [Recovered/Resolved]
  - Product odour abnormal [Unknown]
  - Swelling face [Recovered/Resolved]

NARRATIVE: CASE EVENT DATE: 20220109
